FAERS Safety Report 12498400 (Version 2)
Quarter: 2017Q3

REPORT INFORMATION
  Report Type: Spontaneous
  Country: CH (occurrence: CH)
  Receive Date: 20160627
  Receipt Date: 20170705
  Transmission Date: 20171127
  Serious: Yes (Other)
  Sender: FDA-Public Use
  Company Number: CH-VIIV HEALTHCARE LIMITED-CH2016089001

PATIENT
  Sex: Female

DRUGS (7)
  1. RHINOCORT [Suspect]
     Active Substance: BUDESONIDE
     Indication: ASTHMA
     Dosage: 1 DF, QD
     Route: 045
  2. KIVEXA [Suspect]
     Active Substance: ABACAVIR SULFATE\LAMIVUDINE
     Indication: HIV INFECTION
     Dosage: 1 DF, UNK
     Route: 048
  3. SERETIDE [Suspect]
     Active Substance: FLUTICASONE PROPIONATE\SALMETEROL XINAFOATE
     Indication: ASTHMA
     Dosage: 1 DF, BID
     Route: 055
  4. SIRDALUD (TIZANIDINE HYDROCHLORIDE) [Suspect]
     Active Substance: TIZANIDINE HYDROCHLORIDE
     Indication: PRODUCT USED FOR UNKNOWN INDICATION
     Dosage: 1 DF, QD
     Route: 048
     Dates: end: 20160529
  5. BILAXTEN [Concomitant]
     Active Substance: BILASTINE
     Indication: ASTHMA
     Dosage: 1 DF, QD
     Route: 048
  6. INTELENCE [Concomitant]
     Active Substance: ETRAVIRINE
     Indication: HIV INFECTION
     Dosage: 200 MG, BID
     Route: 048
  7. CITALOPRAM [Suspect]
     Active Substance: CITALOPRAM HYDROBROMIDE
     Indication: DEPRESSION
     Dosage: 20 MG, QD
     Route: 048

REACTIONS (2)
  - Live birth [Unknown]
  - Exposure during pregnancy [Unknown]
